FAERS Safety Report 8312040-0 (Version None)
Quarter: 2012Q2

REPORT INFORMATION
  Report Type: 
  Country: None (occurrence: None)
  Receive Date: 20120425
  Receipt Date: 20120413
  Transmission Date: 20120825
  Serious: Yes (Hospitalization)
  Sender: FDA-Public Use
  Company Number: JP-ELI_LILLY_AND_COMPANY-JP201204000954

PATIENT
  Age: 14 Year
  Sex: Female

DRUGS (1)
  1. ZYPREXA [Suspect]
     Dosage: 2.5 MG, QD
     Route: 048

REACTIONS (3)
  - MUSCULAR WEAKNESS [None]
  - OVERDOSE [None]
  - DYSPHAGIA [None]
